FAERS Safety Report 6149954-6 (Version None)
Quarter: 2009Q2

REPORT INFORMATION
  Report Type: 
  Country: None (occurrence: None)
  Receive Date: 20090407
  Receipt Date: 20090407
  Transmission Date: 20091009
  Serious: No
  Sender: FDA-Public Use
  Company Number: None

PATIENT
  Age: 32 Year
  Sex: Female
  Weight: 49.8957 kg

DRUGS (1)
  1. CHANTIX [Suspect]
     Indication: SMOKING CESSATION THERAPY
     Dosage: 1 MG TWICE DAILY PO
     Route: 048
     Dates: start: 20080724, end: 20081010

REACTIONS (8)
  - DEPRESSION [None]
  - DIZZINESS [None]
  - FATIGUE [None]
  - INSOMNIA [None]
  - NAUSEA [None]
  - PARANOIA [None]
  - STRESS [None]
  - SUICIDAL IDEATION [None]
